FAERS Safety Report 4273663-1 (Version None)
Quarter: 2004Q1

REPORT INFORMATION
  Report Type: 
  Country: None (occurrence: None)
  Receive Date: 20040116
  Receipt Date: 20040116
  Transmission Date: 20041129
  Serious: Yes (Other)
  Sender: FDA-Public Use
  Company Number: None

PATIENT
  Age: 33 Year
  Sex: Female
  Weight: 65.318 kg

DRUGS (2)
  1. ZOLOFT [Suspect]
     Indication: OBSESSIVE-COMPULSIVE DISORDER
     Dosage: 25MG DAILY ORAL
     Route: 048
     Dates: start: 19950101, end: 20030701
  2. ZOLOFT [Suspect]
     Indication: PANIC DISORDER
     Dosage: 25MG DAILY ORAL
     Route: 048
     Dates: start: 19950101, end: 20030701

REACTIONS (8)
  - AGGRESSION [None]
  - FEELING ABNORMAL [None]
  - HYPERACUSIS [None]
  - INFLUENZA LIKE ILLNESS [None]
  - INSOMNIA [None]
  - MOOD SWINGS [None]
  - MYALGIA [None]
  - TINNITUS [None]
